FAERS Safety Report 9852927 (Version 1)
Quarter: 2014Q1

REPORT INFORMATION
  Report Type: Spontaneous
  Country: US (occurrence: None)
  Receive Date: 20140128
  Receipt Date: 20140128
  Transmission Date: 20141002
  Serious: Yes (Death)
  Sender: FDA-Public Use
  Company Number: None

PATIENT
  Age: 56 Year
  Sex: 0

DRUGS (1)
  1. EXJADE 500 MG NOVARTIS [Suspect]
     Indication: IRON OVERLOAD
     Route: 048
     Dates: start: 20131010, end: 20140123

REACTIONS (1)
  - Death [None]
